FAERS Safety Report 14762676 (Version 5)
Quarter: 2018Q2

REPORT INFORMATION
  Report Type: Spontaneous
  Country: US (occurrence: US)
  Receive Date: 20180416
  Receipt Date: 20180524
  Transmission Date: 20180711
  Serious: No
  Sender: FDA-Public Use
  Company Number: US-PFIZER INC-2018149884

PATIENT
  Age: 50 Year
  Sex: Female
  Weight: 117.9 kg

DRUGS (4)
  1. FLECTOR [Suspect]
     Active Substance: DICLOFENAC EPOLAMINE
     Indication: INFLAMMATION
     Dosage: UNK, 2X/DAY(1 TO EACH KNEE TWICE DAILY, EVERY 12 HOURS)
     Route: 062
     Dates: start: 20180406, end: 20180408
  2. FLECTOR [Suspect]
     Active Substance: DICLOFENAC EPOLAMINE
     Indication: ANALGESIC THERAPY
     Dosage: UNK, 2X/DAY(Q 12 HR)
     Route: 061
     Dates: start: 20180404, end: 20180411
  3. FLECTOR [Suspect]
     Active Substance: DICLOFENAC EPOLAMINE
     Indication: OSTEOARTHRITIS
  4. FLECTOR [Suspect]
     Active Substance: DICLOFENAC EPOLAMINE
     Indication: PAIN

REACTIONS (6)
  - Abdominal discomfort [Recovering/Resolving]
  - Drug ineffective [Not Recovered/Not Resolved]
  - Gastrointestinal disorder [Unknown]
  - Diarrhoea [Recovering/Resolving]
  - Nausea [Recovered/Resolved]
  - Abdominal pain upper [Unknown]

NARRATIVE: CASE EVENT DATE: 20180407
